FAERS Safety Report 19008960 (Version 1)
Quarter: 2021Q1

REPORT INFORMATION
  Report Type: Spontaneous
  Country: IT (occurrence: IT)
  Receive Date: 20210316
  Receipt Date: 20210316
  Transmission Date: 20210420
  Serious: Yes (Other)
  Sender: FDA-Public Use
  Company Number: IT-AUROBINDO-AUR-APL-2021-010154

PATIENT
  Age: 20 Year
  Sex: Male

DRUGS (4)
  1. BISOPROLOL [Suspect]
     Active Substance: BISOPROLOL
     Dosage: 1.25 MILLIGRAM, ONCE A DAY
     Route: 065
  2. TRIATEC (RAMIPRIL) [Suspect]
     Active Substance: RAMIPRIL
     Indication: PRODUCT USED FOR UNKNOWN INDICATION
     Dosage: 1 GRAM
     Route: 065
  3. BISOPROLOL [Suspect]
     Active Substance: BISOPROLOL
     Indication: MYOCARDITIS
     Dosage: 1.25 MORNING AND EVENING
     Route: 065
  4. TRIATEC (RAMIPRIL) [Suspect]
     Active Substance: RAMIPRIL
     Dosage: 2.5 (UNSPECIFIED UNITS) IN THE MORNING
     Route: 065

REACTIONS (9)
  - Off label use [Unknown]
  - Protein C increased [Unknown]
  - Chest discomfort [Unknown]
  - Heart rate increased [Unknown]
  - Chest pain [Unknown]
  - Hypertension [Unknown]
  - Anxiety [Unknown]
  - Arrhythmia [Unknown]
  - Roseolovirus test positive [Unknown]
